FAERS Safety Report 5042437-6 (Version None)
Quarter: 2006Q3

REPORT INFORMATION
  Report Type: 
  Country: None (occurrence: None)
  Receive Date: 20060705
  Receipt Date: 20020530
  Transmission Date: 20061208
  Serious: Yes (Disabling, Other)
  Sender: FDA-Public Use
  Company Number: PHFR2002GB01847

PATIENT
  Age: 45 Year
  Sex: Male

DRUGS (10)
  1. CLOZARIL [Suspect]
     Indication: SCHIZOPHRENIA
     Dosage: 600 MG/DAY
     Route: 048
     Dates: start: 19980501
  2. CLOZARIL [Suspect]
     Dosage: 275 MG/DAY
     Route: 048
  3. VALPROATE SODIUM [Concomitant]
     Dosage: 2G/DAY
     Route: 048
     Dates: start: 19980901
  4. ATORVASTATIN CALCIUM [Concomitant]
     Dosage: 10 MG/DAY
     Route: 048
  5. LACTULOSE [Concomitant]
     Dosage: 90 ML/DAY
     Route: 048
  6. OMEPRAZOLE [Concomitant]
     Dosage: 10 MG/DAY
     Route: 048
  7. FRUSEMIDE [Concomitant]
     Dosage: 40 MG/DAY
     Route: 048
  8. CALCICHEW [Concomitant]
     Dosage: 1500 MG/DAY
     Route: 048
  9. HYDROXOCOBALAMIN [Concomitant]
     Dosage: 1 MG EVERY 3 MONTHS
     Route: 030
  10. EPOGEN [Concomitant]
     Dosage: 2000 WEEKLY
     Route: 058

REACTIONS (5)
  - BLOOD CREATININE INCREASED [None]
  - BLOOD UREA INCREASED [None]
  - DIALYSIS [None]
  - HAEMOGLOBIN DECREASED [None]
  - RENAL FAILURE [None]
